FAERS Safety Report 5624069-1 (Version None)
Quarter: 2008Q1

REPORT INFORMATION
  Report Type: 
  Country: None (occurrence: None)
  Receive Date: 20080213
  Receipt Date: 20070111
  Transmission Date: 20080703
  Serious: No
  Sender: FDA-Public Use
  Company Number: US-KINGPHARMUSA00001-K200700025

PATIENT

DRUGS (2)
  1. EPIPEN [Suspect]
     Dosage: UNK, SINGLE
     Dates: start: 20070111, end: 20070111
  2. AUGMENTIN '125' [Concomitant]
     Indication: INFECTION
     Route: 048

REACTIONS (1)
  - ACCIDENTAL EXPOSURE [None]
